FAERS Safety Report 7961643-1 (Version None)
Quarter: 2011Q4

REPORT INFORMATION
  Report Type: 
  Country: None (occurrence: None)
  Receive Date: 20111202
  Receipt Date: 20111202
  Transmission Date: 20120403
  Serious: No
  Sender: FDA-Public Use
  Company Number: None

PATIENT
  Age: 35 Year
  Sex: Male
  Weight: 99.7913 kg

DRUGS (2)
  1. PROBABLY ZOLOFT - MAYBE SERTRALINE [Suspect]
     Indication: TYPE 2 DIABETES MELLITUS
     Dosage: 200/MG DAILY - P.O.
     Route: 048
     Dates: start: 20090101, end: 20110101
  2. PROBABLY ZOLOFT - MAYBE SERTRALINE [Suspect]
     Indication: PAIN
     Dosage: 200/MG DAILY - P.O.
     Route: 048
     Dates: start: 20090101, end: 20110101

REACTIONS (5)
  - PANIC ATTACK [None]
  - INSOMNIA [None]
  - ORGASM ABNORMAL [None]
  - FATIGUE [None]
  - WEIGHT INCREASED [None]
